FAERS Safety Report 5056160-5 (Version None)
Quarter: 2006Q3

REPORT INFORMATION
  Report Type: 
  Country: None (occurrence: None)
  Receive Date: 20060720
  Receipt Date: 20060717
  Transmission Date: 20061208
  Serious: Yes (Other)
  Sender: FDA-Public Use
  Company Number: AU-GLAXOSMITHKLINE-B0431566A

PATIENT
  Age: 38 Year
  Sex: Male

DRUGS (1)
  1. ZYBAN [Suspect]

REACTIONS (3)
  - AGGRESSION [None]
  - HEADACHE [None]
  - IRRITABILITY [None]
